FAERS Safety Report 5399337-1 (Version None)
Quarter: 2007Q3

REPORT INFORMATION
  Report Type: 
  Country: None (occurrence: None)
  Receive Date: 20070727
  Receipt Date: 20070724
  Transmission Date: 20080115
  Serious: Yes (Other)
  Sender: FDA-Public Use
  Company Number: PHRM2007FR01899

PATIENT
  Age: 57 Year
  Sex: Male

DRUGS (2)
  1. GLEEVEC [Suspect]
     Indication: CHRONIC MYELOID LEUKAEMIA
     Dosage: UNK, UNK
     Route: 048
     Dates: start: 20050401, end: 20060501
  2. GLEEVEC [Suspect]
     Dosage: 600 MG PER DAY
     Route: 048
     Dates: start: 20060501

REACTIONS (2)
  - BASAL CELL CARCINOMA [None]
  - SKIN LESION [None]
